FAERS Safety Report 7400426-8 (Version None)
Quarter: 2011Q2

REPORT INFORMATION
  Report Type: 
  Country: None (occurrence: None)
  Receive Date: 20110407
  Receipt Date: 20110310
  Transmission Date: 20111010
  Serious: No
  Sender: FDA-Public Use
  Company Number: US-B.I. PHARMACEUTICALS,INC./RIDGEFIELD-2011-BP-07671BP

PATIENT
  Sex: Male

DRUGS (16)
  1. PRADAXA [Suspect]
     Dosage: 150 MG
     Route: 048
     Dates: start: 20110129, end: 20110303
  2. AVODART [Concomitant]
     Indication: PROSTATIC DISORDER
     Dosage: 0.5 MG
  3. OMEPRAZOLE [Concomitant]
     Indication: DYSPEPSIA
     Dosage: 20 MG
  4. LASIX [Concomitant]
     Indication: FLUID RETENTION
     Dosage: 40 MG
  5. ALTACE [Concomitant]
     Indication: CARDIAC DISORDER
     Dosage: 5 MG
  6. ARICEPT [Concomitant]
     Indication: MEMORY IMPAIRMENT
     Dosage: 10 MG
  7. TRAVATAN [Concomitant]
     Indication: GLAUCOMA
  8. COREG [Concomitant]
     Indication: CARDIAC DISORDER
     Dosage: 13 MG
  9. ASPIRIN [Concomitant]
     Indication: ANTICOAGULANT THERAPY
     Dosage: 81 MG
  10. AMIODARONE [Concomitant]
     Indication: CARDIAC DISORDER
     Dosage: 400 MG
  11. FERROUS SULFATE TAB [Concomitant]
     Indication: CARDIAC DISORDER
  12. PRADAXA [Suspect]
     Dosage: 300 MG
     Route: 048
     Dates: start: 20110304
  13. METFORMIN [Concomitant]
     Indication: DIABETES MELLITUS
     Dosage: 1000 MG
  14. SIMVASTATIN [Concomitant]
     Dosage: 20 MG
  15. PRADAXA [Suspect]
     Indication: ATRIAL FIBRILLATION
     Dosage: 300 MG
     Route: 048
     Dates: start: 20110101, end: 20110128
  16. GLYBURIDE [Concomitant]
     Indication: DIABETES MELLITUS
     Dosage: 5 MG

REACTIONS (1)
  - ARRHYTHMIA [None]
